FAERS Safety Report 8265427-9 (Version None)
Quarter: 2012Q2

REPORT INFORMATION
  Report Type: 
  Country: None (occurrence: None)
  Receive Date: 20120406
  Receipt Date: 20120402
  Transmission Date: 20120825
  Serious: Yes (Death)
  Sender: FDA-Public Use
  Company Number: JP-PFIZER INC-2012077605

PATIENT
  Age: 65 Year
  Sex: Female
  Weight: 59 kg

DRUGS (8)
  1. SILDENAFIL CITRATE [Suspect]
     Dosage: 20 MG, 2X/DAY
     Route: 048
     Dates: start: 20120313
  2. LASIX [Concomitant]
     Indication: CARDIAC FAILURE
     Dosage: 40 MG, 1X/DAY
     Route: 048
     Dates: start: 20111117
  3. TRICHLORMETHIAZIDE [Concomitant]
     Indication: CARDIAC FAILURE
     Dosage: 2 MG, 1X/DAY
     Route: 048
     Dates: start: 20120208
  4. CALCIUM POLYSTYRENE SULFONATE [Concomitant]
     Indication: HYPERKALAEMIA
     Dosage: 25 G, 3X/DAY
     Route: 048
     Dates: start: 20120214
  5. URSO 250 [Concomitant]
     Indication: HEPATIC CIRRHOSIS
     Dosage: 100 MG, 3X/DAY
     Route: 048
     Dates: start: 20070101
  6. SILDENAFIL CITRATE [Suspect]
     Indication: PULMONARY HYPERTENSION
     Dosage: 20 MG, 3X/DAY
     Route: 048
     Dates: start: 20111114, end: 20120312
  7. LANSOPRAZOLE [Concomitant]
     Indication: PROPHYLAXIS AGAINST GASTROINTESTINAL ULCER
     Dosage: 15 MG, 1X/DAY
     Route: 048
     Dates: start: 20070101
  8. ALDACTONE [Concomitant]
     Indication: CARDIAC FAILURE
     Dosage: 25 MG, 1X/DAY
     Route: 048
     Dates: start: 20120214

REACTIONS (2)
  - HEPATORENAL SYNDROME [None]
  - PERITONITIS BACTERIAL [None]
